FAERS Safety Report 8897272 (Version 1)
Quarter: 2012Q4

REPORT INFORMATION
  Report Type: 
  Country: US (occurrence: US)
  Receive Date: 20121108
  Receipt Date: 20121108
  Transmission Date: 20130627
  Serious: No
  Sender: FDA-Public Use
  Company Number: US-AMGEN-USASP2012025923

PATIENT
  Age: 53 Year
  Sex: Female

DRUGS (16)
  1. ENBREL [Suspect]
     Indication: IRIDOCYCLITIS
     Dosage: 50 mg, qwk
     Dates: start: 201111
  2. METOCLOPRAMIDE [Concomitant]
     Dosage: 1 mg, qd
  3. PROMETHAZINE [Concomitant]
     Dosage: 4 mg, qd
  4. BUPROPION                          /00700502/ [Concomitant]
     Dosage: 2 mg, qd
  5. ASPIRIN [Concomitant]
     Dosage: 1 mg, qd
  6. MORPHINE SULFATE PENTAHYDRATE [Concomitant]
     Dosage: 3 mg, qd
  7. PREDNISONE [Concomitant]
     Dosage: UNK
  8. OXYCODONE / ACETAMINOPHEN [Concomitant]
     Dosage: 1 mg, UNK
  9. CYCLOBENZAPRINE [Concomitant]
     Dosage: 1 mg, UNK
  10. NEXIUM                             /01479302/ [Concomitant]
     Dosage: 1 mg, qd
  11. PLAVIX [Concomitant]
     Dosage: 1 mg, qd
  12. ALPRAZOLAM [Concomitant]
     Dosage: 1 mg, qd
  13. ALPRAZOLAM [Concomitant]
     Dosage: 3 mg, qd
  14. TEMAZEPAM [Concomitant]
     Dosage: 1 mg, qd
  15. FOLIC ACID [Concomitant]
     Dosage: 1 mug, qd
  16. NOVOLOG [Concomitant]
     Dosage: UNK

REACTIONS (2)
  - Nasopharyngitis [Unknown]
  - Pyrexia [Unknown]
